FAERS Safety Report 4571194-2 (Version None)
Quarter: 2005Q1

REPORT INFORMATION
  Report Type: 
  Country: None (occurrence: None)
  Receive Date: 20050202
  Receipt Date: 20050119
  Transmission Date: 20050727
  Serious: Yes (Death)
  Sender: FDA-Public Use
  Company Number: 0510003

PATIENT
  Weight: 0.4536 kg

DRUGS (1)
  1. NITISINONE/COMPASS.USE [Suspect]
     Indication: TYROSINAEMIA

REACTIONS (3)
  - GASTROINTESTINAL HAEMORRHAGE [None]
  - HEPATIC FUNCTION ABNORMAL [None]
  - STREPTOCOCCAL SEPSIS [None]
